FAERS Safety Report 22185222 (Version 2)
Quarter: 2023Q2

REPORT INFORMATION
  Report Type: Spontaneous
  Country: US (occurrence: US)
  Receive Date: 20230407
  Receipt Date: 20230521
  Transmission Date: 20230722
  Serious: No
  Sender: FDA-Public Use
  Company Number: US-ABBVIE-4345516

PATIENT
  Age: 79 Year
  Sex: Female

DRUGS (2)
  1. HUMIRA [Suspect]
     Active Substance: ADALIMUMAB
     Indication: Inflammation
     Dosage: STRENGTH: 40MG
     Route: 058
     Dates: start: 2018
  2. XIIDRA [Suspect]
     Active Substance: LIFITEGRAST
     Indication: Product used for unknown indication
     Route: 065
     Dates: start: 2019

REACTIONS (6)
  - Eye irritation [Unknown]
  - Inflammation [Not Recovered/Not Resolved]
  - Dry eye [Unknown]
  - Eye disorder [Unknown]
  - Birdshot chorioretinopathy [Unknown]
  - Endocrine ophthalmopathy [Unknown]

NARRATIVE: CASE EVENT DATE: 20180601
